FAERS Safety Report 8216570-1 (Version None)
Quarter: 2012Q1

REPORT INFORMATION
  Report Type: 
  Country: None (occurrence: None)
  Receive Date: 20120316
  Receipt Date: 20120308
  Transmission Date: 20120608
  Serious: Yes (Hospitalization)
  Sender: FDA-Public Use
  Company Number: PHHY2012RS020712

PATIENT
  Age: 64 Year
  Sex: Female
  Weight: 72 kg

DRUGS (6)
  1. ASPIRIN [Concomitant]
     Indication: ACUTE MYOCARDIAL INFARCTION
     Dosage: 100 MG, UNK
     Route: 048
     Dates: start: 20030101
  2. ATORVASTATIN CALCIUM [Concomitant]
     Indication: INFARCTION
     Dosage: 10 MG, UNK
     Route: 048
     Dates: start: 20030101
  3. AMIODARONE HYDROCHLORIDE [Suspect]
     Indication: VENTRICULAR ARRHYTHMIA
     Dosage: 200 MG, QD
     Route: 048
     Dates: start: 20090101, end: 20120228
  4. FARIN [Concomitant]
     Indication: ATRIAL FIBRILLATION
     Route: 048
     Dates: start: 20090101
  5. MONIZOL [Concomitant]
     Indication: CARDIAC FAILURE
     Dosage: 20 MG, BID
     Route: 048
     Dates: start: 20090101
  6. DILACOR XR [Concomitant]
     Indication: CARDIAC FAILURE
     Dosage: 0.25 MG, UNK
     Route: 048

REACTIONS (4)
  - CHOKING [None]
  - THYROID FUNCTION TEST ABNORMAL [None]
  - PALPITATIONS [None]
  - OEDEMA PERIPHERAL [None]
